FAERS Safety Report 11155807 (Version 2)
Quarter: 2015Q2

REPORT INFORMATION
  Report Type: Report from Study
  Country: IE (occurrence: IE)
  Receive Date: 20150602
  Receipt Date: 20150618
  Transmission Date: 20150821
  Serious: Yes (Death, Hospitalization)
  Sender: FDA-Public Use
  Company Number: IE-AMGEN-IRLSL2015052494

PATIENT
  Age: 91 Year
  Sex: Male

DRUGS (11)
  1. DOMERID [Concomitant]
     Route: 048
  2. CENTYL K [Concomitant]
     Route: 048
  3. SCOPOLAMINE                        /00008701/ [Concomitant]
     Active Substance: SCOPOLAMINE
  4. MEMANTINE                          /00646902/ [Concomitant]
     Dosage: 10
     Route: 048
  5. PROLIA [Suspect]
     Active Substance: DENOSUMAB
     Indication: OSTEOPOROSIS
     Dosage: 60 MG, Q6MO
     Route: 058
     Dates: start: 201206, end: 20141209
  6. ENSURE [Concomitant]
     Active Substance: AMINO ACIDS\DEXTROSE\ELECTROLYTES NOS\SOYBEAN OIL\VITAMINS
     Route: 048
  7. ACEMUCOL [Concomitant]
     Dosage: 10/10
     Route: 048
  8. CASODEX [Concomitant]
     Active Substance: BICALUTAMIDE
     Route: 048
  9. ELIGARD [Concomitant]
     Active Substance: LEUPROLIDE ACETATE
  10. ASPRIN [Concomitant]
     Active Substance: ASPIRIN
     Route: 048
  11. VITAMIN D                          /00107901/ [Concomitant]
     Active Substance: ERGOCALCIFEROL

REACTIONS (1)
  - Death [Fatal]

NARRATIVE: CASE EVENT DATE: 20150317
